FAERS Safety Report 8819337 (Version 1)
Quarter: 2012Q4

REPORT INFORMATION
  Report Type: 
  Country: CN (occurrence: CN)
  Receive Date: 20121001
  Receipt Date: 20121001
  Transmission Date: 20130627
  Serious: Yes (Hospitalization)
  Sender: FDA-Public Use
  Company Number: CN-JNJFOC-20120912618

PATIENT
  Age: 2 Year
  Sex: Male

DRUGS (4)
  1. IBUPROFEN [Suspect]
     Route: 048
  2. IBUPROFEN [Suspect]
     Indication: PYREXIA
     Dosage: 2.5ml once, 100ml bottle: 2g
     Route: 048
     Dates: start: 20100531, end: 20100531
  3. ANTITUSSIVE [Suspect]
     Indication: COUGH
     Route: 065
     Dates: start: 20100531, end: 20100531
  4. UNSPECIFIED INGREDIENT [Suspect]
     Indication: COUGH
     Route: 065
     Dates: start: 20100531, end: 20100531

REACTIONS (3)
  - Respiratory disorder [Recovering/Resolving]
  - Anaphylactic shock [Recovering/Resolving]
  - Drug hypersensitivity [None]
